FAERS Safety Report 8456112 (Version 3)
Quarter: 2015Q4

REPORT INFORMATION
  Report Type: Report from Study
  Country: CA (occurrence: CA)
  Receive Date: 20120313
  Receipt Date: 20151217
  Transmission Date: 20160305
  Serious: Yes (Hospitalization, Other)
  Sender: FDA-Public Use
  Company Number: CA-ROCHE-1044770

PATIENT
  Age: 67 Year
  Sex: Female
  Weight: 47.67 kg

DRUGS (7)
  1. DIPHENHYDRAMINE HCL [Concomitant]
     Active Substance: DIPHENHYDRAMINE HYDROCHLORIDE
     Route: 048
     Dates: start: 20120315
  2. ACETAMINOPHEN. [Concomitant]
     Active Substance: ACETAMINOPHEN
     Route: 048
     Dates: start: 20120315
  3. RITUXAN [Suspect]
     Active Substance: RITUXIMAB
     Indication: RHEUMATOID ARTHRITIS
     Route: 042
     Dates: start: 20080805
  4. RITUXAN [Suspect]
     Active Substance: RITUXIMAB
     Dosage: DATE OF LAST DOSE : 29/MAR/2012?LAST RITUXAN INFUSION: 15-FEB-2015
     Route: 042
     Dates: start: 20120315
  5. ESTRADOT [Concomitant]
     Active Substance: ESTRADIOL
     Route: 065
  6. PROMETRIUM (CANADA) [Concomitant]
  7. ULTRADOL [Concomitant]

REACTIONS (7)
  - Photosensitivity reaction [Not Recovered/Not Resolved]
  - Arthropathy [Unknown]
  - Nasopharyngitis [Recovered/Resolved]
  - Mental impairment [Not Recovered/Not Resolved]
  - Amnesia [Not Recovered/Not Resolved]
  - Laryngitis [Not Recovered/Not Resolved]
  - Rheumatoid arthritis [Unknown]

NARRATIVE: CASE EVENT DATE: 201312
